FAERS Safety Report 18499881 (Version 1)
Quarter: 2020Q4

REPORT INFORMATION
  Report Type: Spontaneous
  Country: US (occurrence: US)
  Receive Date: 20201112
  Receipt Date: 20201112
  Transmission Date: 20210114
  Serious: Yes (Death, Life-Threatening, Hospitalization, Other)
  Sender: FDA-Public Use
  Company Number: US-AUROBINDO-AUR-APL-2012-01778

PATIENT
  Age: 37 Year
  Sex: Male

DRUGS (4)
  1. TRIMETHOPRIM+SULFAMETHOXAZOLE [Suspect]
     Active Substance: SULFAMETHOXAZOLE\TRIMETHOPRIM
     Indication: PRODUCT USED FOR UNKNOWN INDICATION
     Dosage: UNK UNK,UNK,
     Route: 065
  2. METHOTREXATE. [Interacting]
     Active Substance: METHOTREXATE
     Indication: PSORIASIS
     Dosage: 20 MILLIGRAM
     Route: 042
  3. METHOTREXATE. [Interacting]
     Active Substance: METHOTREXATE
     Dosage: UNK, HAD POSSIBLY EXCEEDED THE INITIALLY STATED 20MG
     Route: 042
  4. AZITHROMYCIN ANHYDROUS. [Concomitant]
     Active Substance: AZITHROMYCIN ANHYDROUS
     Indication: PRODUCT USED FOR UNKNOWN INDICATION
     Dosage: UNK
     Route: 065

REACTIONS (26)
  - Acute kidney injury [Unknown]
  - Tenderness [Unknown]
  - Rash pustular [Unknown]
  - Scab [Unknown]
  - Odynophagia [Unknown]
  - Dyspnoea [Unknown]
  - Back pain [Unknown]
  - Face oedema [Unknown]
  - Toxicity to various agents [Unknown]
  - Palmar erythema [Unknown]
  - Mucosal inflammation [Unknown]
  - Potentiating drug interaction [Unknown]
  - Febrile neutropenia [Unknown]
  - Hepatitis acute [Unknown]
  - Diarrhoea [Unknown]
  - Dysphagia [Unknown]
  - Renal failure [Unknown]
  - Psoriasis [Unknown]
  - Oral mucosa erosion [Unknown]
  - Pancytopenia [Fatal]
  - Hypotension [Unknown]
  - Self-medication [Unknown]
  - Discomfort [Unknown]
  - Erythema [Unknown]
  - Mucosal erosion [Unknown]
  - Hepatic function abnormal [Unknown]
